FAERS Safety Report 10647573 (Version 1)
Quarter: 2014Q4

REPORT INFORMATION
  Report Type: Spontaneous
  Country: IR (occurrence: IR)
  Receive Date: 20141211
  Receipt Date: 20141211
  Transmission Date: 20150529
  Serious: Yes (Hospitalization)
  Sender: FDA-Public Use
  Company Number: IR-ALLERGAN-1425071US

PATIENT
  Age: 24 Year
  Sex: Male

DRUGS (1)
  1. BOTOX [Suspect]
     Active Substance: ONABOTULINUMTOXINA
     Indication: HYPERHIDROSIS
     Dosage: 1000 UNITS, SINGLE

REACTIONS (3)
  - Botulism [Recovering/Resolving]
  - Overdose [Unknown]
  - Off label use [Unknown]
